FAERS Safety Report 5474334-6 (Version None)
Quarter: 2007Q4

REPORT INFORMATION
  Report Type: 
  Country: None (occurrence: None)
  Receive Date: 20071002
  Receipt Date: 20070925
  Transmission Date: 20080405
  Serious: Yes (Other)
  Sender: FDA-Public Use
  Company Number: PHEH2007US12854

PATIENT
  Age: 31 Year
  Sex: Female

DRUGS (2)
  1. ZOLOFT [Concomitant]
  2. TRILEPTAL [Suspect]
     Indication: CONVULSION
     Dosage: 600 MG, QD

REACTIONS (3)
  - CAESAREAN SECTION [None]
  - DRUG EXPOSURE DURING PREGNANCY [None]
  - PREMATURE LABOUR [None]
